FAERS Safety Report 22638336 (Version 1)
Quarter: 2023Q2

REPORT INFORMATION
  Report Type: Spontaneous
  Country: RS (occurrence: RS)
  Receive Date: 20230626
  Receipt Date: 20230626
  Transmission Date: 20230721
  Serious: Yes (Death, Life-Threatening, Hospitalization, Other)
  Sender: FDA-Public Use
  Company Number: None

PATIENT
  Age: 65 Year
  Sex: Male

DRUGS (6)
  1. AZATHIOPRINE [Suspect]
     Active Substance: AZATHIOPRINE
     Indication: Noninfective encephalitis
     Dosage: 50 MILLIGRAM, QD
     Route: 065
  2. AZATHIOPRINE [Suspect]
     Active Substance: AZATHIOPRINE
     Indication: Cerebral amyloid angiopathy
  3. PREDNISONE [Suspect]
     Active Substance: PREDNISONE
     Indication: Noninfective encephalitis
     Dosage: 1 MILLIGRAM/KILOGRAM
     Route: 048
  4. PREDNISONE [Suspect]
     Active Substance: PREDNISONE
     Indication: Cerebral amyloid angiopathy
  5. METHYLPREDNISOLONE [Suspect]
     Active Substance: METHYLPREDNISOLONE
     Indication: Noninfective encephalitis
     Dosage: 1 GRAM, QD
     Route: 065
  6. METHYLPREDNISOLONE [Suspect]
     Active Substance: METHYLPREDNISOLONE
     Indication: Cerebral amyloid angiopathy

REACTIONS (6)
  - Cardiac arrest [Fatal]
  - Gastrointestinal bacterial infection [Fatal]
  - Respiratory failure [Fatal]
  - Nosocomial infection [Fatal]
  - Clostridium difficile infection [Fatal]
  - Off label use [Unknown]
